FAERS Safety Report 20446663 (Version 1)
Quarter: 2022Q1

REPORT INFORMATION
  Report Type: Spontaneous
  Country: CZ (occurrence: CZ)
  Receive Date: 20220208
  Receipt Date: 20220208
  Transmission Date: 20220423
  Serious: Yes (Life-Threatening, Hospitalization, Other)
  Sender: FDA-Public Use
  Company Number: None

PATIENT
  Age: 34 Year
  Sex: Male

DRUGS (4)
  1. ZYPADHERA [Suspect]
     Active Substance: OLANZAPINE PAMOATE
     Indication: Schizophrenia
     Dosage: 405 MG, WEEKLY (1/W)
     Route: 030
     Dates: start: 2021, end: 20220119
  2. ZYPADHERA [Suspect]
     Active Substance: OLANZAPINE PAMOATE
     Indication: Schizophrenia
     Dosage: 405 MG, WEEKLY (1/W)
     Route: 030
     Dates: start: 2021, end: 20220119
  3. ZYPADHERA [Suspect]
     Active Substance: OLANZAPINE PAMOATE
     Indication: Schizophrenia
     Dosage: 405 MG, WEEKLY (1/W)
     Route: 030
     Dates: start: 2021, end: 20220119
  4. ATOMINEX [Concomitant]
     Indication: Attention deficit hyperactivity disorder
     Dosage: 80 MG (1-0-0)
     Route: 048
     Dates: start: 2021, end: 20220119

REACTIONS (5)
  - Blood pressure fluctuation [Recovered/Resolved]
  - Extrapyramidal disorder [Recovered/Resolved]
  - Post-injection delirium sedation syndrome [Recovered/Resolved]
  - Delirium [Recovered/Resolved]
  - Somnolence [Recovered/Resolved]

NARRATIVE: CASE EVENT DATE: 20220119
